FAERS Safety Report 22643810 (Version 1)
Quarter: 2023Q2

REPORT INFORMATION
  Report Type: Spontaneous
  Country: DE (occurrence: DE)
  Receive Date: 20230627
  Receipt Date: 20230627
  Transmission Date: 20230722
  Serious: Yes (Life-Threatening, Other)
  Sender: FDA-Public Use
  Company Number: DE-Merck Healthcare KGaA-9336845

PATIENT
  Age: 57 Year
  Sex: Female

DRUGS (4)
  1. EUTHYROX [Suspect]
     Active Substance: LEVOTHYROXINE SODIUM
     Indication: Autoimmune thyroiditis
     Dates: start: 2008
  2. EUTHYROX [Suspect]
     Active Substance: LEVOTHYROXINE SODIUM
  3. CALCIUM CARBONATE\CALCIUM LACTATE GLUCONATE [Suspect]
     Active Substance: CALCIUM CARBONATE\CALCIUM LACTATE GLUCONATE
     Indication: Osteopenia
  4. ERGOCALCIFEROL [Concomitant]
     Active Substance: ERGOCALCIFEROL
     Indication: Osteopenia

REACTIONS (6)
  - Hypothyroidism [Unknown]
  - Drug interaction [Unknown]
  - Osteopenia [Unknown]
  - Blood alkaline phosphatase increased [Not Recovered/Not Resolved]
  - Arthralgia [Unknown]
  - Hyperthyroidism [Unknown]

NARRATIVE: CASE EVENT DATE: 20211201
